FAERS Safety Report 22306132 (Version 5)
Quarter: 2023Q4

REPORT INFORMATION
  Report Type: Spontaneous
  Country: US (occurrence: US)
  Receive Date: 20230511
  Receipt Date: 20231128
  Transmission Date: 20240110
  Serious: No
  Sender: FDA-Public Use
  Company Number: US-002147023-NVSC2023US104461

PATIENT
  Age: 69 Year
  Sex: Female
  Weight: 130 kg

DRUGS (5)
  1. ILARIS [Suspect]
     Active Substance: CANAKINUMAB
     Indication: Still^s disease
     Dosage: 240 MG, Q4 WEEK
     Route: 058
     Dates: start: 201911
  2. ILARIS [Suspect]
     Active Substance: CANAKINUMAB
     Dosage: 240 MG, Q4 WEEK
     Route: 058
     Dates: start: 20230405
  3. HYDROQUINONE [Concomitant]
     Active Substance: HYDROQUINONE
     Indication: Product used for unknown indication
     Dosage: UNK
     Route: 065
  4. HYDROCORTISONE [Concomitant]
     Active Substance: HYDROCORTISONE
     Indication: Product used for unknown indication
     Dosage: UNK
     Route: 065
  5. HYDROXYCHLOROQUINE [Concomitant]
     Active Substance: HYDROXYCHLOROQUINE
     Indication: Product used for unknown indication
     Dosage: 200 MG, QD
     Route: 065

REACTIONS (6)
  - COVID-19 [Recovered/Resolved]
  - Vertigo [Recovered/Resolved]
  - Ophthalmic migraine [Recovered/Resolved]
  - Balance disorder [Unknown]
  - Gait disturbance [Unknown]
  - Clumsiness [Unknown]

NARRATIVE: CASE EVENT DATE: 20230409
